FAERS Safety Report 4630546-2 (Version None)
Quarter: 2005Q2

REPORT INFORMATION
  Report Type: 
  Country: None (occurrence: None)
  Receive Date: 20050408
  Receipt Date: 20050329
  Transmission Date: 20051028
  Serious: Yes (Death)
  Sender: FDA-Public Use
  Company Number: GB-GLAXOSMITHKLINE-B0376068A

PATIENT
  Age: 36 Year
  Sex: Female

DRUGS (2)
  1. PAROXETINE HCL [Suspect]
     Indication: DEPRESSION
     Route: 048
  2. PAIN KILLERS [Concomitant]
     Indication: HEADACHE
     Route: 065

REACTIONS (5)
  - DEATH [None]
  - DRUG LEVEL DECREASED [None]
  - DYSPNOEA [None]
  - FATIGUE [None]
  - THERAPEUTIC AGENT TOXICITY [None]
